FAERS Safety Report 16476113 (Version 2)
Quarter: 2019Q2

REPORT INFORMATION
  Report Type: Report from Study
  Country: US (occurrence: US)
  Receive Date: 20190625
  Receipt Date: 20190627
  Transmission Date: 20190711
  Serious: Yes (Other)
  Sender: FDA-Public Use
  Company Number: US-ASTRAZENECA-2019SE81227

PATIENT
  Sex: Female

DRUGS (3)
  1. SIMVASTATIN. [Concomitant]
     Active Substance: SIMVASTATIN
  2. ATENOLOL. [Suspect]
     Active Substance: ATENOLOL
     Route: 065
  3. TAGRISSO [Suspect]
     Active Substance: OSIMERTINIB
     Dosage: 1 TABLET (80 MG) EVERY OTHER DAY ALTERNATING WITH 40 MG.
     Route: 048
     Dates: start: 20190426

REACTIONS (9)
  - Abdominal pain [Unknown]
  - Intentional product misuse [Unknown]
  - Diarrhoea [Unknown]
  - Lung adenocarcinoma [Unknown]
  - Cancer pain [Unknown]
  - EGFR gene mutation [Unknown]
  - Blood pressure increased [Unknown]
  - Metastases to bone [Unknown]
  - Dry skin [Unknown]
